FAERS Safety Report 9698879 (Version 2)
Quarter: 2013Q4

REPORT INFORMATION
  Report Type: Spontaneous
  Country: US (occurrence: US)
  Receive Date: 20131120
  Receipt Date: 20131224
  Transmission Date: 20140711
  Serious: Yes (Hospitalization)
  Sender: FDA-Public Use
  Company Number: US-SA-2013SA117593

PATIENT
  Sex: Male

DRUGS (2)
  1. IRBESARTAN + HCTZ [Suspect]
     Route: 065
  2. LOSARTAN [Concomitant]
     Dates: start: 2011

REACTIONS (4)
  - Adverse event [Unknown]
  - Ear infection [Unknown]
  - Back disorder [Unknown]
  - Dizziness [Unknown]
